FAERS Safety Report 22018347 (Version 1)
Quarter: 2023Q1

REPORT INFORMATION
  Report Type: Spontaneous
  Country: US (occurrence: US)
  Receive Date: 20230221
  Receipt Date: 20230221
  Transmission Date: 20230417
  Serious: No
  Sender: FDA-Public Use
  Company Number: US-002147023-NVSC2023US035746

PATIENT
  Sex: Female

DRUGS (1)
  1. BRIMONIDINE TARTRATE [Suspect]
     Active Substance: BRIMONIDINE TARTRATE
     Indication: Product used for unknown indication
     Dosage: 5 ML (JUST STARTED IT FOR A WEEK)
     Route: 065

REACTIONS (5)
  - Foreign body in eye [Unknown]
  - Ocular hyperaemia [Unknown]
  - Eye irritation [Unknown]
  - Product deposit [Unknown]
  - Eye pruritus [Unknown]
